FAERS Safety Report 4553340-X (Version None)
Quarter: 2005Q1

REPORT INFORMATION
  Report Type: 
  Country: None (occurrence: None)
  Receive Date: 20050114
  Receipt Date: 20041229
  Transmission Date: 20050727
  Serious: Yes (Hospitalization)
  Sender: FDA-Public Use
  Company Number: US-ABBOTT-04P-163-0284984-00

PATIENT
  Sex: Female
  Weight: 61.29 kg

DRUGS (1)
  1. HUMIRA [Suspect]
     Indication: RHEUMATOID ARTHRITIS
     Route: 058
     Dates: start: 20030101, end: 20041201

REACTIONS (4)
  - IMPLANT SITE INFECTION [None]
  - JOINT DESTRUCTION [None]
  - STAPHYLOCOCCAL INFECTION [None]
  - TENDON RUPTURE [None]
